FAERS Safety Report 13188807 (Version 1)
Quarter: 2017Q1

REPORT INFORMATION
  Report Type: Spontaneous
  Country: US (occurrence: US)
  Receive Date: 20170205
  Receipt Date: 20170205
  Transmission Date: 20170428
  Serious: No
  Sender: FDA-Public Use
  Company Number: None

PATIENT
  Age: 29 Year
  Sex: Female
  Weight: 77 kg

DRUGS (3)
  1. MIRVASO [Suspect]
     Active Substance: BRIMONIDINE TARTRATE
     Indication: ROSACEA
     Dosage: TOP 1 PEA SIZE ON 5 AREA?
     Route: 061
     Dates: start: 20170102, end: 20170205
  2. NEXPLANON [Concomitant]
     Active Substance: ETONOGESTREL
  3. MULTIVITAMINS [Concomitant]
     Active Substance: VITAMINS

REACTIONS (2)
  - Erythema [None]
  - Flushing [None]

NARRATIVE: CASE EVENT DATE: 20170205
